FAERS Safety Report 5712000-X (Version None)
Quarter: 2008Q2

REPORT INFORMATION
  Report Type: 
  Country: None (occurrence: None)
  Receive Date: 20080416
  Receipt Date: 20080331
  Transmission Date: 20081010
  Serious: Yes (Hospitalization)
  Sender: FDA-Public Use
  Company Number: DSA_31684_2008

PATIENT
  Sex: Male

DRUGS (6)
  1. MONO-TILDEM (MONO-TILDEM - DILTIAZEM HYDROCHLORIDE) (PROLONGED RELEASE [Suspect]
     Indication: DRUG USE FOR UNKNOWN INDICATION
     Dosage: 200 MG QD ORAL
     Route: 048
     Dates: end: 20071010
  2. PREVISCAN [Concomitant]
  3. OXAZEPAM [Concomitant]
  4. PRAVASTATIN [Concomitant]
  5. DOLIPRANE [Concomitant]
  6. TERALITHE [Concomitant]

REACTIONS (3)
  - BRADYCARDIA [None]
  - MALAISE [None]
  - ORTHOSTATIC HYPOTENSION [None]
